FAERS Safety Report 9537527 (Version 3)
Quarter: 2013Q3

REPORT INFORMATION
  Report Type: Report from Study
  Country: US (occurrence: US)
  Receive Date: 20130919
  Receipt Date: 20130930
  Transmission Date: 20140515
  Serious: Yes (Other)
  Sender: FDA-Public Use
  Company Number: US-PFIZER INC-2012126050

PATIENT
  Age: 55 Year
  Sex: Male
  Weight: 82.54 kg

DRUGS (12)
  1. ENBREL [Suspect]
     Indication: RHEUMATOID ARTHRITIS
     Dosage: 50 MG, EVERY 7 DAYS
     Route: 058
     Dates: start: 20110122
  2. METHOTREXATE SODIUM [Suspect]
     Dosage: 50 MG/2ML, UNK
     Route: 065
  3. VITAMIN C [Concomitant]
     Dosage: 500 MG, 3X/DAY
  4. FLAXSEED OIL [Concomitant]
     Dosage: UNK
  5. GINGER [Concomitant]
     Dosage: 500 MG, UNK
  6. VITAMIN D3 [Concomitant]
     Dosage: 10000 IU, UNK
  7. VITAMIN D3 [Concomitant]
     Dosage: UNK
  8. VITAMIN D3 [Concomitant]
     Dosage: 10000 UNIT, UNK
  9. ZINC [Concomitant]
     Dosage: 50 MG, UNK
  10. PREDNISONE [Concomitant]
     Dosage: 1 MG, UNK
  11. TURMERIC [Concomitant]
     Dosage: 450 MG, UNK
  12. FOLIC ACID [Concomitant]
     Dosage: 20 MG, UNK

REACTIONS (5)
  - Meniere^s disease [Unknown]
  - Convulsion [Unknown]
  - Increased tendency to bruise [Unknown]
  - Injection site bruising [Unknown]
  - Injection site pain [Unknown]
